FAERS Safety Report 16776519 (Version 4)
Quarter: 2020Q1

REPORT INFORMATION
  Report Type: Report from Study
  Country: US (occurrence: US)
  Receive Date: 20190905
  Receipt Date: 20200109
  Transmission Date: 20200409
  Serious: Yes (Hospitalization, Other)
  Sender: FDA-Public Use
  Company Number: US-PFIZER INC-2019262478

PATIENT
  Age: 67 Year
  Sex: Female

DRUGS (5)
  1. PLAQUENIL [Concomitant]
     Active Substance: HYDROXYCHLOROQUINE SULFATE
     Indication: RHEUMATOID ARTHRITIS
     Dosage: UNK
  2. SUTENT [Suspect]
     Active Substance: SUNITINIB MALATE
     Dosage: 50 MG, CYCLIC (DAILY FOR 28 DAYS OFF 7 DAYS)
     Route: 048
     Dates: end: 20190818
  3. SUTENT [Suspect]
     Active Substance: SUNITINIB MALATE
     Indication: RENAL CELL CARCINOMA
     Dosage: 50 MG CYCLIC (DAILY FOR 28 DAYS ON, 14 DAYS OFF OF 42 DAY CYCLE)
     Route: 048
     Dates: start: 20190601
  4. SUTENT [Suspect]
     Active Substance: SUNITINIB MALATE
     Dosage: 50 MG, DAILY
     Route: 048
     Dates: start: 20190106
  5. SUTENT [Suspect]
     Active Substance: SUNITINIB MALATE
     Dosage: 50 MG, DAILY
     Route: 048
     Dates: start: 20190601, end: 20190829

REACTIONS (20)
  - Infection [Recovered/Resolved]
  - Rash [Recovered/Resolved]
  - Deep vein thrombosis [Unknown]
  - Mitral valve incompetence [Unknown]
  - Dysphonia [Not Recovered/Not Resolved]
  - Dyspnoea [Unknown]
  - Haematochezia [Unknown]
  - Rash [Not Recovered/Not Resolved]
  - Skin discolouration [Not Recovered/Not Resolved]
  - Asthenia [Unknown]
  - Anaemia [Unknown]
  - Aortic stenosis [Unknown]
  - Dyspepsia [Not Recovered/Not Resolved]
  - Gastrooesophageal reflux disease [Unknown]
  - Rash vesicular [Not Recovered/Not Resolved]
  - Blood urine present [Unknown]
  - Thrombosis [Unknown]
  - Lymphadenopathy [Unknown]
  - Arthralgia [Unknown]
  - Cardiac disorder [Unknown]

NARRATIVE: CASE EVENT DATE: 2019
